FAERS Safety Report 16254810 (Version 1)
Quarter: 2019Q2

REPORT INFORMATION
  Report Type: Spontaneous
  Country: SE (occurrence: SE)
  Receive Date: 20190430
  Receipt Date: 20190430
  Transmission Date: 20190711
  Serious: Yes (Other)
  Sender: FDA-Public Use
  Company Number: SE-ACCORD-125179

PATIENT
  Age: 80 Year
  Sex: Female

DRUGS (12)
  1. RAMIPRIL. [Suspect]
     Active Substance: RAMIPRIL
     Indication: CARDIAC FAILURE
     Route: 048
     Dates: start: 20190207, end: 20190213
  2. OXYNORM [Concomitant]
     Active Substance: OXYCODONE HYDROCHLORIDE
     Dosage: 1 VB, MAX 3/DAG, STRENGTH : 5 MG
  3. BISOPROLOL [Concomitant]
     Active Substance: BISOPROLOL
     Dates: start: 20190207
  4. ELIQUIS [Concomitant]
     Active Substance: APIXABAN
     Dosage: STRENGTH : 2.5 MG
     Dates: start: 201902
  5. MOVICOL [Concomitant]
     Active Substance: POLYETHYLENE GLYCOL 3350\POTASSIUM CHLORIDE\SODIUM BICARBONATE\SODIUM CHLORIDE
     Dosage: 1-3 VB, MAX 3/DAG
  6. FURIX (FUROSEMIDE) [Concomitant]
     Active Substance: FUROSEMIDE
     Dosage: 2 ML X 3, INJECTION FLUID, SOLUTION
     Route: 042
     Dates: start: 201902
  7. SPIRONOLACTONE. [Concomitant]
     Active Substance: SPIRONOLACTONE
  8. PARAFLEX [Concomitant]
     Active Substance: CHLORZOXAZONE
     Dosage: 1 VB, MAX 4/DAG, STRENGTH : 250 MG
     Dates: end: 20190208
  9. ALVEDON [Concomitant]
     Active Substance: ACETAMINOPHEN
     Dosage: STRENGTH : 500 MG
  10. AERIUS [Concomitant]
     Dosage: 1 VB, MAX 4/DAG, STRENGTH : 5 MG
  11. METHOTREXATE. [Concomitant]
     Active Substance: METHOTREXATE
  12. FOLACIN [Concomitant]
     Dosage: STRENGTH : 1 MG

REACTIONS (3)
  - Idiosyncratic drug reaction [Recovering/Resolving]
  - Pruritus [Recovering/Resolving]
  - Rash morbilliform [Recovering/Resolving]

NARRATIVE: CASE EVENT DATE: 20190211
